FAERS Safety Report 6361229-9 (Version None)
Quarter: 2009Q3

REPORT INFORMATION
  Report Type: 
  Country: None (occurrence: None)
  Receive Date: 20090918
  Receipt Date: 20090910
  Transmission Date: 20100115
  Serious: Yes (Other)
  Sender: FDA-Public Use
  Company Number: CA-BAYER-200924319NA

PATIENT
  Age: 76 Year
  Sex: Male
  Weight: 77 kg

DRUGS (12)
  1. NEXAVAR [Suspect]
     Indication: HEPATIC NEOPLASM MALIGNANT
     Dosage: TOTAL DAILY DOSE: 800 MG  UNIT DOSE: 200 MG
     Route: 048
     Dates: start: 20090201
  2. APO-CAL [Concomitant]
     Dosage: TOTAL DAILY DOSE: 1000 MG
     Route: 048
  3. EURO D [Concomitant]
     Dosage: TOTAL DAILY DOSE: 400 IU
     Route: 048
  4. FERROUS SULFATE TAB [Concomitant]
     Dosage: TOTAL DAILY DOSE: 900 MG
     Route: 048
  5. FOLIC ACID [Concomitant]
     Dosage: TOTAL DAILY DOSE: 5 MG
     Route: 048
  6. FUROSEMIDE [Concomitant]
     Dosage: TOTAL DAILY DOSE: 40 MG
     Route: 048
  7. NOVOLIN R [Concomitant]
     Dosage: INTRAMUSCULAR
  8. NOVORAPID [Concomitant]
     Dosage: 38 UNITS IN MORNING, 24 UNITS AT SUPPER
  9. PANTOPRAZOLE SODIUM [Concomitant]
     Dosage: TOTAL DAILY DOSE: 80 MG
     Route: 048
  10. PMS-METOPROLOL-L [Concomitant]
     Dosage: TOTAL DAILY DOSE: 50 MG
     Route: 048
  11. SPIRONOLACTONE [Concomitant]
     Dosage: TOTAL DAILY DOSE: 100 MG
     Route: 048
  12. SYNTHROID [Concomitant]
     Dosage: TOTAL DAILY DOSE: 0.1 MG
     Route: 048

REACTIONS (4)
  - DIARRHOEA [None]
  - DIZZINESS [None]
  - DYSPNOEA [None]
  - NAUSEA [None]
